FAERS Safety Report 4520044-9 (Version None)
Quarter: 2004Q4

REPORT INFORMATION
  Report Type: 
  Country: None (occurrence: None)
  Receive Date: 20041027
  Receipt Date: 20040602
  Transmission Date: 20050328
  Serious: No
  Sender: FDA-Public Use
  Company Number: US078770

PATIENT
  Age: 66 Year
  Sex: Female
  Weight: 52.2 kg

DRUGS (2)
  1. SENSIPAR [Suspect]
     Indication: HYPERPARATHYROIDISM SECONDARY
     Dosage: 30 MG, 1 IN 1 DAYS, PO
     Route: 048
     Dates: start: 20040519, end: 20040524
  2. PARICALCITOL [Concomitant]

REACTIONS (3)
  - DISORIENTATION [None]
  - DYSKINESIA [None]
  - TINNITUS [None]
